FAERS Safety Report 4468050-7 (Version None)
Quarter: 2004Q4

REPORT INFORMATION
  Report Type: 
  Country: None (occurrence: None)
  Receive Date: 20041004
  Receipt Date: 20040924
  Transmission Date: 20050328
  Serious: Yes (Disabling, Other)
  Sender: FDA-Public Use
  Company Number: 2004235162DE

PATIENT
  Sex: Female

DRUGS (1)
  1. CLINDAMYCIN HYDROCHLORIDE [Suspect]
     Indication: BONE INFECTION
     Dosage: 900 MG, DAILY, ORAL
     Route: 048
     Dates: start: 20040918, end: 20040920

REACTIONS (2)
  - BLINDNESS TRANSIENT [None]
  - VISUAL DISTURBANCE [None]
